FAERS Safety Report 8497190-0 (Version None)
Quarter: 2012Q3

REPORT INFORMATION
  Report Type: 
  Country: None (occurrence: None)
  Receive Date: 20120709
  Receipt Date: 20120606
  Transmission Date: 20120928
  Serious: No
  Sender: FDA-Public Use
  Company Number: US-AMGEN-USASP2012035382

PATIENT
  Age: 79 Year
  Sex: Female

DRUGS (9)
  1. LIPITOR [Concomitant]
     Dosage: 1 MG, UNK
  2. OMEPRAZOLE [Concomitant]
     Dosage: 1 MG, UNK
  3. CARVEDILOL [Concomitant]
     Dosage: 2 MG, UNK
  4. CALCIUM [Concomitant]
     Dosage: 2 UNK, UNK
  5. FAMOTIDINE [Concomitant]
     Dosage: 1 MG, UNK
  6. ENBREL [Suspect]
     Indication: PSORIATIC ARTHROPATHY
     Dosage: 50 MG, QWK
     Dates: start: 20120401
  7. PREDNISONE [Concomitant]
     Dosage: UNK MG, UNK
  8. ASPIRIN [Concomitant]
     Dosage: 1 MG, UNK
  9. VITAMIN D [Concomitant]
     Dosage: 1 MUG, UNK

REACTIONS (2)
  - VISION BLURRED [None]
  - OROPHARYNGEAL PAIN [None]
